FAERS Safety Report 16280647 (Version 1)
Quarter: 2019Q2

REPORT INFORMATION
  Report Type: Spontaneous
  Country: FR (occurrence: FR)
  Receive Date: 20190507
  Receipt Date: 20190507
  Transmission Date: 20190711
  Serious: Yes (Other)
  Sender: FDA-Public Use
  Company Number: FR-ASTRAZENECA-2019SE68435

PATIENT
  Age: 68 Year
  Sex: Female

DRUGS (1)
  1. LYNPARZA [Suspect]
     Active Substance: OLAPARIB
     Dosage: 400 MG DAILY, 4 CAPSULES OF 50 MG IN MORNING AND 4 CAPSULES OF 50 MG IN EVENING
     Route: 048
     Dates: start: 201806

REACTIONS (4)
  - Product use issue [Unknown]
  - Disease recurrence [Unknown]
  - Off label use [Unknown]
  - Product prescribing issue [Unknown]
